FAERS Safety Report 24939889 (Version 1)
Quarter: 2025Q1

REPORT INFORMATION
  Report Type: Spontaneous
  Country: DE (occurrence: DE)
  Receive Date: 20250207
  Receipt Date: 20250207
  Transmission Date: 20250409
  Serious: Yes (Other)
  Sender: MERCK KGAA
  Company Number: DE-Merck Healthcare KGaA-2025005169

PATIENT
  Sex: Female

DRUGS (12)
  1. EUTHYROX [Suspect]
     Active Substance: LEVOTHYROXINE SODIUM
     Indication: Autoimmune thyroiditis
  2. EUTHYROX [Suspect]
     Active Substance: LEVOTHYROXINE SODIUM
  3. BENSERAZIDE\LEVODOPA [Concomitant]
     Active Substance: BENSERAZIDE\LEVODOPA
     Indication: Product used for unknown indication
  4. VITAMIN B COMPLEX [Concomitant]
     Active Substance: CYANOCOBALAMIN\DEXPANTHENOL\NIACINAMIDE\PYRIDOXINE HYDROCHLORIDE\RIBOFLAVIN 5^-PHOSPHATE SODIUM\THIA
     Indication: Product used for unknown indication
  5. DIETARY SUPPLEMENT\UBIDECARENONE [Concomitant]
     Active Substance: DIETARY SUPPLEMENT\UBIDECARENONE
     Indication: Product used for unknown indication
  6. MAGNESIUM [Concomitant]
     Active Substance: MAGNESIUM
     Indication: Product used for unknown indication
  7. ZINC [Concomitant]
     Active Substance: ZINC
     Indication: Product used for unknown indication
  8. POTASSIUM [Concomitant]
     Active Substance: POTASSIUM
     Indication: Product used for unknown indication
  9. VITAMIN D3 [Concomitant]
     Active Substance: CHOLECALCIFEROL
     Indication: Product used for unknown indication
  10. HYALURONIC ACID [Concomitant]
     Active Substance: HYALURONIC ACID
     Indication: Product used for unknown indication
  11. LEVOCARNITINE [Concomitant]
     Active Substance: LEVOCARNITINE
     Indication: Symptomatic treatment
  12. MILK THISTLE [BETA VULGARIS EXTRACT;CYNARA CARDUNCULUS EXTRACT;LEONURU [Concomitant]
     Indication: Product used for unknown indication

REACTIONS (9)
  - Polyneuropathy [Unknown]
  - Neuralgia [Unknown]
  - Decreased appetite [Unknown]
  - Iron deficiency [Unknown]
  - Fatigue [Unknown]
  - Weight increased [Unknown]
  - Blood thyroid stimulating hormone abnormal [Recovering/Resolving]
  - Product dose omission in error [Unknown]
  - Wrong technique in product usage process [Unknown]
